FAERS Safety Report 25761013 (Version 1)
Quarter: 2025Q3

REPORT INFORMATION
  Report Type: Spontaneous
  Country: CN (occurrence: CN)
  Receive Date: 20250904
  Receipt Date: 20250904
  Transmission Date: 20251021
  Serious: Yes (Life-Threatening, Other)
  Sender: PFIZER
  Company Number: CN-PFIZER INC-PV202500106388

PATIENT
  Age: 89 Year
  Sex: Male

DRUGS (2)
  1. AXITINIB [Suspect]
     Active Substance: AXITINIB
     Indication: Renal cell carcinoma
     Dates: end: 20220418
  2. SINTILIMAB [Suspect]
     Active Substance: SINTILIMAB
     Indication: Renal cell carcinoma
     Dates: end: 20220418

REACTIONS (2)
  - Hypertension [Unknown]
  - Dermatitis bullous [Unknown]
